FAERS Safety Report 12680621 (Version 2)
Quarter: 2016Q4

REPORT INFORMATION
  Report Type: Other
  Country: SE (occurrence: SE)
  Receive Date: 20160824
  Receipt Date: 20161014
  Transmission Date: 20170207
  Serious: Yes (Other)
  Sender: FDA-Public Use
  Company Number: SE-HIKMA PHARMACEUTICALS CO. LTD-2016SE008047

PATIENT

DRUGS (4)
  1. REMSIMA [Suspect]
     Active Substance: INFLIXIMAB
     Dosage: 150 MG, UNK
     Route: 065
  2. REMSIMA [Suspect]
     Active Substance: INFLIXIMAB
     Indication: RHEUMATOID ARTHRITIS
     Dosage: 150 MG, UNK
     Route: 065
     Dates: start: 20160223, end: 20160223
  3. REMSIMA [Suspect]
     Active Substance: INFLIXIMAB
     Dosage: 150 MG, UNK
     Route: 065
     Dates: start: 20160707, end: 20160707
  4. REMSIMA [Suspect]
     Active Substance: INFLIXIMAB
     Dosage: 150 MG, UNK
     Route: 065

REACTIONS (6)
  - Nasal discomfort [Recovered/Resolved]
  - Respiratory disorder [Recovered/Resolved]
  - Feeling hot [Recovered/Resolved]
  - Chest discomfort [Recovered/Resolved]
  - Pallor [Recovered/Resolved]
  - Palpitations [Recovered/Resolved]

NARRATIVE: CASE EVENT DATE: 20160707
